FAERS Safety Report 6375470-2 (Version None)
Quarter: 2009Q3

REPORT INFORMATION
  Report Type: 
  Country: None (occurrence: None)
  Receive Date: 20090924
  Receipt Date: 20090722
  Transmission Date: 20100115
  Serious: Yes (Hospitalization)
  Sender: FDA-Public Use
  Company Number: JP-PFIZER INC-2009237478

PATIENT
  Age: 57 Year

DRUGS (15)
  1. OXALIPLATIN [Suspect]
     Indication: COLORECTAL CANCER
     Dosage: 110 MG, EVERY 2 WEEKS
     Route: 042
     Dates: start: 20080612, end: 20090626
  2. SUNITINIB MALATE [Suspect]
     Indication: COLORECTAL CANCER
     Dosage: 50 MG, 1X/DAY, 2 WKS ON 2 WKS OFF
     Route: 048
     Dates: start: 20080614, end: 20090630
  3. *FLUOROURACIL [Suspect]
     Indication: COLORECTAL CANCER
     Dosage: 680 MG, EVERY 2 WEEKS
     Route: 040
     Dates: start: 20080612, end: 20090626
  4. *FLUOROURACIL [Suspect]
     Dosage: 4080 MG, EVERY 2 WEEKS
     Route: 042
     Dates: start: 20080612, end: 20090628
  5. *FOLINIC ACID [Suspect]
     Indication: COLORECTAL CANCER
     Dosage: 340 MG, EVERY 2 WEEKS
     Route: 042
     Dates: start: 20080612, end: 20090626
  6. RENIVACE [Concomitant]
     Indication: HYPERTENSION
     Dosage: UNK
     Route: 048
     Dates: start: 20080519, end: 20090703
  7. BLOPRESS [Concomitant]
     Indication: HYPERTENSION
     Dosage: UNK
     Route: 048
     Dates: start: 20080527, end: 20090703
  8. ADALAT CC [Concomitant]
     Indication: HYPERTENSION
     Dosage: UNK
     Route: 048
     Dates: start: 20080705, end: 20090703
  9. AZUNOL [Concomitant]
     Indication: STOMATITIS
     Dosage: UNK
     Route: 049
     Dates: start: 20080722, end: 20090703
  10. HIRUDOID [Concomitant]
     Dosage: UNK
     Route: 062
     Dates: start: 20080723, end: 20090703
  11. UREPEARL [Concomitant]
     Indication: RASH
     Dosage: UNK
     Route: 062
     Dates: start: 20080723, end: 20090703
  12. MYSER [Concomitant]
     Indication: RASH
     Dosage: UNK
     Route: 062
     Dates: start: 20090109, end: 20090703
  13. MYSER [Concomitant]
     Indication: HOT FLUSH
  14. PARIET [Concomitant]
     Indication: PROPHYLAXIS AGAINST GASTROINTESTINAL ULCER
     Dosage: UNK
     Route: 048
     Dates: start: 20090309, end: 20090703
  15. PROMAC /JPN/ [Concomitant]
     Indication: DYSGEUSIA
     Dosage: UNK
     Route: 048
     Dates: start: 20090508, end: 20090703

REACTIONS (2)
  - AORTIC DISSECTION [None]
  - CEREBRAL INFARCTION [None]
